FAERS Safety Report 24659891 (Version 1)
Quarter: 2024Q4

REPORT INFORMATION
  Report Type: Other
  Country: US (occurrence: US)
  Receive Date: 20241125
  Receipt Date: 20241125
  Transmission Date: 20250114
  Serious: Yes (Other)
  Sender: PRASCO
  Company Number: US-Prasco Laboratories-PRAS20241261

PATIENT
  Age: 57 Year
  Sex: Female

DRUGS (2)
  1. MIRTAZAPINE [Suspect]
     Active Substance: MIRTAZAPINE
     Indication: Anxiety
     Dosage: 45 MG
     Route: 048
  2. METHADONE [Concomitant]
     Active Substance: METHADONE HYDROCHLORIDE
     Indication: Drug use disorder

REACTIONS (4)
  - Ototoxicity [Recovering/Resolving]
  - Deafness bilateral [Recovering/Resolving]
  - Hallucination, auditory [Recovering/Resolving]
  - Tinnitus [Recovering/Resolving]
